FAERS Safety Report 10776032 (Version 1)
Quarter: 2015Q1

REPORT INFORMATION
  Report Type: Spontaneous
  Country: US (occurrence: None)
  Receive Date: 20150205
  Receipt Date: 20150205
  Transmission Date: 20150721
  Serious: No
  Sender: FDA-Public Use
  Company Number: None

PATIENT

DRUGS (1)
  1. MITOSOL [Suspect]
     Active Substance: ISOPROPYL ALCOHOL\MITOMYCIN
     Dosage: SOLUTION OPHTHALMIC USE 0.2 MG
     Route: 047

REACTIONS (1)
  - Product label issue [None]
